FAERS Safety Report 6491220-3 (Version None)
Quarter: 2009Q4

REPORT INFORMATION
  Report Type: 
  Country: None (occurrence: None)
  Receive Date: 20091208
  Receipt Date: 20091124
  Transmission Date: 20100525
  Serious: Yes (Death)
  Sender: FDA-Public Use
  Company Number: A-NJ2009-30587

PATIENT
  Age: 67 Year
  Sex: Female

DRUGS (3)
  1. VENTAVIS              (ILOPROST INHALATION SOLUTION UNKNOWN US) INHALA [Suspect]
     Indication: PULMONARY ARTERIAL HYPERTENSION
     Dosage: 10 UG, REPIRATORY
     Route: 055
     Dates: start: 20090507
  2. REVATIO (SILDENAFEL CITRATE) [Concomitant]
  3. AMBRISENTAN (AMBRISENTAN) [Concomitant]

REACTIONS (1)
  - DEATH [None]
